FAERS Safety Report 7944364-0 (Version None)
Quarter: 2011Q4

REPORT INFORMATION
  Report Type: 
  Country: None (occurrence: None)
  Receive Date: 20111129
  Receipt Date: 20111121
  Transmission Date: 20120403
  Serious: No
  Sender: FDA-Public Use
  Company Number: US-BIOGENIDEC-2011BI044603

PATIENT
  Age: 48 Year
  Sex: Female

DRUGS (3)
  1. TYSABRI [Suspect]
     Indication: MULTIPLE SCLEROSIS
     Route: 042
     Dates: start: 20110329
  2. CELEXA [Concomitant]
     Indication: DEPRESSION
     Route: 048
     Dates: start: 20090101
  3. AMPYRA [Concomitant]
     Indication: MOBILITY DECREASED
     Dates: start: 20110901, end: 20111017

REACTIONS (6)
  - DEPRESSION [None]
  - DISSOCIATION [None]
  - BALANCE DISORDER [None]
  - HEADACHE [None]
  - MUSCULAR WEAKNESS [None]
  - ALOPECIA [None]
